FAERS Safety Report 18455206 (Version 1)
Quarter: 2020Q4

REPORT INFORMATION
  Report Type: Spontaneous
  Country: DE (occurrence: DE)
  Receive Date: 20201102
  Receipt Date: 20201102
  Transmission Date: 20210114
  Serious: Yes (Death)
  Sender: FDA-Public Use
  Company Number: DE-FRESENIUS KABI-FK202011585

PATIENT
  Age: 33 Year
  Sex: Male

DRUGS (8)
  1. RITONAVIR/LOPINAVIR [Concomitant]
     Active Substance: LOPINAVIR\RITONAVIR
     Indication: ANTIRETROVIRAL THERAPY
  2. DEXAMETHASONE INJECTION (MANUFACTURER UNKNOWN) [Suspect]
     Active Substance: DEXAMETHASONE
     Indication: IMMUNE RECONSTITUTION INFLAMMATORY SYNDROME
     Dosage: UNKNOWN
     Route: 065
  3. AMPHOTERICIN B, LIPOSOME [Suspect]
     Active Substance: AMPHOTERICIN B
     Indication: MENINGITIS CRYPTOCOCCAL
     Route: 042
  4. FLUCYTOSINE. [Suspect]
     Active Substance: FLUCYTOSINE
     Indication: MENINGITIS CRYPTOCOCCAL
     Route: 042
  5. RITONAVIR/LOPINAVIR [Concomitant]
     Active Substance: LOPINAVIR\RITONAVIR
     Indication: ANTIRETROVIRAL THERAPY
     Dosage: UNKNOWN
     Route: 065
  6. EMTRICITABINE/TENOFOVIR DISOPROXIL [Concomitant]
     Active Substance: EMTRICITABINE\TENOFOVIR DISOPROXIL
     Indication: ANTIRETROVIRAL THERAPY
     Dosage: UNKNOWN
     Route: 065
  7. EMTRICITABINE/TENOFOVIR DISOPROXIL [Concomitant]
     Active Substance: EMTRICITABINE\TENOFOVIR DISOPROXIL
     Indication: ANTIRETROVIRAL THERAPY
  8. FLUCONAZOLE (MANUFACTURER UNKNOWN) [Suspect]
     Active Substance: FLUCONAZOLE
     Indication: MENINGITIS CRYPTOCOCCAL
     Route: 042

REACTIONS (1)
  - Treatment failure [Fatal]
